FAERS Safety Report 14350049 (Version 6)
Quarter: 2018Q2

REPORT INFORMATION
  Report Type: Spontaneous
  Country: FR (occurrence: FR)
  Receive Date: 20180104
  Receipt Date: 20180616
  Transmission Date: 20180711
  Serious: Yes (Other)
  Sender: FDA-Public Use
  Company Number: FR-AUROBINDO-AUR-APL-2018-000155

PATIENT
  Age: 84 Year
  Sex: Female
  Weight: 68 kg

DRUGS (15)
  1. PERINDOPRIL ARGININE [Suspect]
     Active Substance: PERINDOPRIL ARGININE
     Indication: HYPERTENSION
     Dosage: 1 UNK, QD (1)
     Route: 065
     Dates: start: 20170101
  2. NISISCO [Concomitant]
     Active Substance: HYDROCHLOROTHIAZIDE\VALSARTAN
     Dosage: UNK ()
     Route: 065
  3. ALDACTAZINE [Concomitant]
     Active Substance: ALTHIAZIDE\SPIRONOLACTONE
     Indication: HYPERTENSION
     Dosage: UNK ()
     Route: 065
  4. RILMENIDINE TABLET [Suspect]
     Active Substance: RILMENIDINE
     Indication: HYPERTENSION
     Dosage: UNK ()
     Route: 048
     Dates: start: 2017
  5. SPIRONOLACTONE. [Suspect]
     Active Substance: SPIRONOLACTONE
     Indication: HYPERTENSION
     Dosage: 1 UNK, QD (1)
     Route: 065
     Dates: start: 20160101
  6. PERINDOPRIL ARGININE [Suspect]
     Active Substance: PERINDOPRIL ARGININE
     Dosage: UNK
     Route: 065
     Dates: start: 20170101
  7. NEBIVOLOL. [Suspect]
     Active Substance: NEBIVOLOL
     Dosage: ()
     Route: 065
  8. ALDACTAZINE [Concomitant]
     Active Substance: ALTHIAZIDE\SPIRONOLACTONE
     Dosage: ()
     Route: 065
  9. TRAMADOL+PARACETAMOL FILM-COATED TABLET [Suspect]
     Active Substance: ACETAMINOPHEN\TRAMADOL
     Indication: ARTHRALGIA
     Dosage: UNK ()
     Route: 048
  10. NISISCO [Concomitant]
     Active Substance: HYDROCHLOROTHIAZIDE\VALSARTAN
     Indication: HYPERTENSION
     Dosage: UNK ()
     Route: 065
  11. NEBIVOLOL. [Suspect]
     Active Substance: NEBIVOLOL
     Indication: HYPERTENSION
     Dosage: UNK ()
     Route: 048
  12. ASPIRIN PROTECT [Concomitant]
     Active Substance: ASPIRIN
     Indication: STENT PLACEMENT
     Dosage: UNK ()
     Route: 065
  13. NISISCO [Concomitant]
     Active Substance: HYDROCHLOROTHIAZIDE\VALSARTAN
     Dosage: UNK ()
     Route: 065
  14. ALDACTAZINE [Concomitant]
     Active Substance: ALTHIAZIDE\SPIRONOLACTONE
     Dosage: 1 DF, QD
     Route: 048
     Dates: start: 2016
  15. SPIRONOLACTONE. [Suspect]
     Active Substance: SPIRONOLACTONE
     Dosage: 25 MG, PRN
     Route: 048
     Dates: start: 2016

REACTIONS (19)
  - Diarrhoea [Unknown]
  - Fatigue [Unknown]
  - Cough [Unknown]
  - Nausea [Unknown]
  - Respiratory disorder [Unknown]
  - Abdominal pain [Unknown]
  - Acute kidney injury [Unknown]
  - Palpitations [Unknown]
  - Arthralgia [Unknown]
  - Dyspnoea [Unknown]
  - Drug ineffective [Unknown]
  - Urine output increased [Not Recovered/Not Resolved]
  - Tachycardia [Unknown]
  - Vasculitis [Unknown]
  - Myalgia [Unknown]
  - Asthma [Unknown]
  - Feeling hot [Unknown]
  - Medication error [Unknown]
  - Drug interaction [Unknown]

NARRATIVE: CASE EVENT DATE: 2016
